FAERS Safety Report 5283803-3 (Version None)
Quarter: 2007Q2

REPORT INFORMATION
  Report Type: 
  Country: None (occurrence: None)
  Receive Date: 20070402
  Receipt Date: 20070319
  Transmission Date: 20071010
  Serious: Yes (Hospitalization)
  Sender: FDA-Public Use
  Company Number: US-AMGEN-KDL212274

PATIENT
  Sex: Female
  Weight: 49.9 kg

DRUGS (12)
  1. NEUPOGEN [Suspect]
     Indication: NEUTROPENIA
     Route: 058
     Dates: start: 20060201
  2. ARANESP [Concomitant]
     Dates: start: 20060817
  3. NABUMETONE [Concomitant]
  4. NEXIUM [Concomitant]
     Route: 065
  5. PROPOXYPHENE NAPSYLATE [Concomitant]
     Route: 048
  6. PHAZYME [Concomitant]
     Route: 048
  7. SINGULAIR [Concomitant]
     Route: 048
  8. MINOCYCLINE HCL [Concomitant]
     Route: 065
  9. FOLIC ACID [Concomitant]
     Route: 048
  10. METOCLOPRAMIDE [Concomitant]
     Route: 065
  11. NYSTATIN [Concomitant]
     Route: 048
  12. LEUKINE [Concomitant]
     Route: 042
     Dates: start: 20070116, end: 20070116

REACTIONS (7)
  - BLOOD URIC ACID INCREASED [None]
  - CHILLS [None]
  - CYANOSIS [None]
  - DYSPNOEA [None]
  - FLUID OVERLOAD [None]
  - HYPONATRAEMIA [None]
  - PYREXIA [None]
